FAERS Safety Report 6640993-5 (Version None)
Quarter: 2010Q1

REPORT INFORMATION
  Report Type: 
  Country: None (occurrence: None)
  Receive Date: 20100318
  Receipt Date: 20100308
  Transmission Date: 20100710
  Serious: Yes (Life-Threatening)
  Sender: FDA-Public Use
  Company Number: B0590202A

PATIENT
  Sex: Male

DRUGS (4)
  1. AUGMENTIN '125' [Suspect]
     Indication: DRUG USE FOR UNKNOWN INDICATION
     Route: 042
     Dates: start: 20090424, end: 20090424
  2. DIPRIVAN [Concomitant]
     Route: 042
     Dates: start: 20090424, end: 20090424
  3. CELOCURINE [Concomitant]
     Route: 042
     Dates: start: 20090424, end: 20090424
  4. SUFENTANIL [Concomitant]
     Route: 042
     Dates: start: 20090424, end: 20090424

REACTIONS (5)
  - ANAPHYLACTIC SHOCK [None]
  - CIRCULATORY COLLAPSE [None]
  - END-TIDAL CO2 DECREASED [None]
  - GENERALISED ERYTHEMA [None]
  - SKIN TEST POSITIVE [None]
